FAERS Safety Report 12392501 (Version 1)
Quarter: 2016Q2

REPORT INFORMATION
  Report Type: Report from Study
  Country: US (occurrence: US)
  Receive Date: 20160523
  Receipt Date: 20160523
  Transmission Date: 20160815
  Serious: Yes (Other)
  Sender: FDA-Public Use
  Company Number: US-BRISTOL-MYERS SQUIBB COMPANY-BMS-2016-038383

PATIENT
  Sex: Female
  Weight: 62.59 kg

DRUGS (1)
  1. ABATACEPT [Suspect]
     Active Substance: ABATACEPT
     Indication: RHEUMATOID ARTHRITIS
     Route: 058

REACTIONS (7)
  - Arthropathy [Unknown]
  - Arthritis [Unknown]
  - Limb operation [Unknown]
  - Oedema peripheral [Unknown]
  - Pain [Unknown]
  - Drug dose omission [Unknown]
  - Surgery [Unknown]
